FAERS Safety Report 5178846-4 (Version None)
Quarter: 2006Q4

REPORT INFORMATION
  Report Type: 
  Country: None (occurrence: None)
  Receive Date: 20061208
  Receipt Date: 20061127
  Transmission Date: 20070319
  Serious: Yes (Other)
  Sender: FDA-Public Use
  Company Number: 2006146838

PATIENT
  Age: 52 Year
  Sex: Female
  Weight: 80.7403 kg

DRUGS (4)
  1. DILANTIN KAPSEAL [Suspect]
     Indication: CONVULSION
     Dosage: 600 MG (100 MG, 2 IN 1 D)
  2. CHANTIX [Suspect]
     Indication: SMOKING CESSATION THERAPY
     Dosage: 2 MG (1 MG, 2 IN 1 D)
     Dates: start: 20061101
  3. LEXAPRO [Concomitant]
  4. CRESTOR [Concomitant]

REACTIONS (5)
  - ANTICONVULSANT DRUG LEVEL ABOVE THERAPEUTIC [None]
  - GINGIVAL ABSCESS [None]
  - GINGIVAL INFECTION [None]
  - GINGIVAL RECESSION [None]
  - INAPPROPRIATE SCHEDULE OF DRUG ADMINISTRATION [None]
